FAERS Safety Report 14101477 (Version 2)
Quarter: 2018Q1

REPORT INFORMATION
  Report Type: Spontaneous
  Country: US (occurrence: US)
  Receive Date: 20171018
  Receipt Date: 20180212
  Transmission Date: 20180508
  Serious: Yes (Other)
  Sender: FDA-Public Use
  Company Number: US-PFIZER INC-2017447994

PATIENT
  Age: 88 Year
  Sex: Male

DRUGS (2)
  1. SUTENT [Suspect]
     Active Substance: SUNITINIB MALATE
     Dosage: 50 MG, CYCLIC (ONCE A DAY FOR 28 DAYS, THEN 14 DAYS OFF)
     Route: 048
     Dates: start: 20170914
  2. SUTENT [Suspect]
     Active Substance: SUNITINIB MALATE
     Dosage: 37.5 MG, CYCLIC(DAILY FOR 4 WEEKS AND 2)
     Route: 048

REACTIONS (3)
  - Platelet count decreased [Unknown]
  - Thrombocytopenia [Unknown]
  - Decreased appetite [Unknown]
